FAERS Safety Report 20202938 (Version 1)
Quarter: 2021Q4

REPORT INFORMATION
  Report Type: Other
  Country: DE (occurrence: DE)
  Receive Date: 20211218
  Receipt Date: 20211218
  Transmission Date: 20220303
  Serious: Yes (Hospitalization)
  Sender: FDA-Public Use
  Company Number: None

PATIENT
  Age: 38 Year
  Sex: Female

DRUGS (10)
  1. GABAPENTIN [Suspect]
     Active Substance: GABAPENTIN
     Indication: Product used for unknown indication
     Dosage: 300 MILLIGRAM, QID
     Route: 065
  2. GABAPENTIN [Suspect]
     Active Substance: GABAPENTIN
     Dosage: UNK,DOSE INCREASED
     Route: 065
  3. BACLOFEN [Suspect]
     Active Substance: BACLOFEN
     Indication: Multiple sclerosis
     Dosage: 50 MILLIGRAM, 2X25MG
     Route: 048
  4. BACLOFEN [Suspect]
     Active Substance: BACLOFEN
     Dosage: UNK, DOSE INCREASED
     Route: 065
  5. BACLOFEN [Suspect]
     Active Substance: BACLOFEN
     Dosage: 921 MICROGRAM, SYNCHROMED II PUMP FOR INTRATHECAL BACLOFEN, SOLUTION FOR INFUSION AND ORAL SOLUTION
     Route: 037
  6. BACLOFEN [Suspect]
     Active Substance: BACLOFEN
     Dosage: UNK (DOSE DECREASED)
     Route: 037
  7. FLUOXETINE [Suspect]
     Active Substance: FLUOXETINE HYDROCHLORIDE
     Indication: Product used for unknown indication
     Dosage: 40 MILLIGRAM, QD
     Route: 065
  8. TIZANIDINE [Suspect]
     Active Substance: TIZANIDINE
     Indication: Product used for unknown indication
     Dosage: 6 MILLIGRAM, TID
     Route: 065
  9. TIZANIDINE [Suspect]
     Active Substance: TIZANIDINE
     Dosage: UNK, DOSE DECREASED
     Route: 065
  10. LAMOTRIGINE [Suspect]
     Active Substance: LAMOTRIGINE
     Indication: Product used for unknown indication
     Dosage: 100 MILLIGRAM, BID
     Route: 065

REACTIONS (22)
  - Hypoacusis [Unknown]
  - Chills [Unknown]
  - Skin burning sensation [Unknown]
  - Memory impairment [Unknown]
  - Dysgeusia [Unknown]
  - Gastrointestinal motility disorder [Unknown]
  - Dysuria [Unknown]
  - Tinnitus [Unknown]
  - Night sweats [Unknown]
  - Dysphagia [Recovered/Resolved]
  - Vision blurred [Not Recovered/Not Resolved]
  - Sleep disorder [Recovered/Resolved]
  - Disturbance in attention [Recovered/Resolved]
  - Somnolence [Recovered/Resolved]
  - Asthenia [Recovered/Resolved]
  - Erythema [Unknown]
  - Confusional state [Recovered/Resolved]
  - Fatigue [Unknown]
  - Dyspnoea [Unknown]
  - Pain in extremity [Recovered/Resolved]
  - Drug ineffective [Unknown]
  - Overdose [Unknown]
